FAERS Safety Report 9721954 (Version 5)
Quarter: 2014Q1

REPORT INFORMATION
  Report Type: Spontaneous
  Country: PT (occurrence: PT)
  Receive Date: 20131202
  Receipt Date: 20140324
  Transmission Date: 20141002
  Serious: Yes (Other)
  Sender: FDA-Public Use
  Company Number: PT-PFIZER INC-2013337190

PATIENT
  Age: 61 Year
  Sex: Female

DRUGS (6)
  1. CELEBREX [Suspect]
     Dosage: 200 MG, 1X/DAY (AT DINNER)
     Route: 048
     Dates: start: 20131118, end: 20131119
  2. ADALGUR N [Suspect]
     Dosage: 2DF AT BREAKFAST, 1DF IN AFTERNOON AND 1DF AT NIGHT
     Route: 048
     Dates: start: 20131118, end: 20131119
  3. ZALDIAR [Suspect]
     Dosage: 325 MG, 37.5 MG 2X/DAY (AT LUNCH AND AT NIGHT)
     Route: 048
     Dates: start: 20131118, end: 20131119
  4. PANTOPRAZOLE [Concomitant]
     Dosage: 20 MG, 1X/DAY (FASTING)
     Route: 048
  5. OSSEOR [Concomitant]
     Dosage: 2 G, 1X/DAY (AT NIGHT)
     Route: 048
  6. CALCIUM 600 [Concomitant]
     Dosage: 1 DF, 1X/DAY (AT BREAKFAST)
     Route: 048

REACTIONS (14)
  - Anxiety [Recovering/Resolving]
  - Abdominal pain upper [Recovered/Resolved]
  - Dyspnoea [Recovered/Resolved]
  - Obstructive airways disorder [Recovered/Resolved]
  - Chest pain [Recovered/Resolved]
  - Spinal cord disorder [Recovering/Resolving]
  - Gastritis atrophic [Not Recovered/Not Resolved]
  - Helicobacter test positive [Not Recovered/Not Resolved]
  - Constipation [Not Recovered/Not Resolved]
  - Vomiting [Recovered/Resolved]
  - Arcus lipoides [Unknown]
  - Abdominal pain [Not Recovered/Not Resolved]
  - Gastrointestinal motility disorder [Not Recovered/Not Resolved]
  - Gastrointestinal mucosal exfoliation [Recovering/Resolving]
